FAERS Safety Report 6149736-5 (Version None)
Quarter: 2009Q2

REPORT INFORMATION
  Report Type: 
  Country: None (occurrence: None)
  Receive Date: 20090407
  Receipt Date: 20090327
  Transmission Date: 20091009
  Serious: Yes (Death, Life-Threatening, Hospitalization)
  Sender: FDA-Public Use
  Company Number: WAES 0711USA07005

PATIENT
  Age: 61 Year
  Sex: Male

DRUGS (13)
  1. CAP VORINOSTAT [Suspect]
     Indication: ADENOCARCINOMA
     Dosage: 400 MG/DAILY PO, 300 MG/DAILY PO
     Route: 048
     Dates: start: 20070926, end: 20071009
  2. CAP VORINOSTAT [Suspect]
     Indication: ADENOCARCINOMA
     Dosage: 400 MG/DAILY PO, 300 MG/DAILY PO
     Route: 048
     Dates: start: 20071019, end: 20071101
  3. CAP VORINOSTAT [Suspect]
     Indication: ADENOCARCINOMA
     Dosage: 400 MG/DAILY PO, 300 MG/DAILY PO
     Route: 048
     Dates: start: 20071109, end: 20071120
  4. CARBOPLATIN [Suspect]
     Indication: ADENOCARCINOMA
     Dosage: 850 MG/1X IV
     Route: 042
     Dates: start: 20070930, end: 20070930
  5. CARBOPLATIN [Suspect]
     Indication: ADENOCARCINOMA
     Dosage: 850 MG/1X IV
     Route: 042
     Dates: start: 20071019, end: 20071019
  6. CARBOPLATIN [Suspect]
     Indication: ADENOCARCINOMA
     Dosage: 850 MG/1X IV
     Route: 042
     Dates: start: 20071109, end: 20071109
  7. PACLITAXEL [Suspect]
     Indication: ADENOCARCINOMA
     Dosage: 400 MG/1X IV, 350 MG/1X IV, 375 MG/1X IV
     Route: 042
     Dates: start: 20070930, end: 20070930
  8. PACLITAXEL [Suspect]
     Indication: ADENOCARCINOMA
     Dosage: 400 MG/1X IV, 350 MG/1X IV, 375 MG/1X IV
     Route: 042
     Dates: start: 20071019, end: 20071019
  9. PACLITAXEL [Suspect]
     Indication: ADENOCARCINOMA
     Dosage: 400 MG/1X IV, 350 MG/1X IV, 375 MG/1X IV
     Route: 042
     Dates: start: 20071109, end: 20071109
  10. CIMETIDINE HCL [Concomitant]
  11. DEXAMETHASONE TAB [Concomitant]
  12. DIPHENHYDRAMINE HCL [Concomitant]
  13. ONDANSETRON [Concomitant]

REACTIONS (5)
  - CARDIOVASCULAR INSUFFICIENCY [None]
  - DEHYDRATION [None]
  - HYPOTENSION [None]
  - NEUTROPHIL COUNT DECREASED [None]
  - RESPIRATORY FAILURE [None]
